FAERS Safety Report 6931446-5 (Version None)
Quarter: 2010Q3

REPORT INFORMATION
  Report Type: 
  Country: None (occurrence: None)
  Receive Date: 20100816
  Receipt Date: 20100806
  Transmission Date: 20110219
  Serious: Yes (Hospitalization, Other)
  Sender: FDA-Public Use
  Company Number: 2009SP201085

PATIENT
  Age: 27 Year
  Sex: Female
  Weight: 80.7403 kg

DRUGS (4)
  1. NUVARING [Suspect]
     Indication: CONTRACEPTION
     Dates: start: 20070612, end: 20070801
  2. DEPO-PROVERA [Suspect]
     Indication: CONTRACEPTION
     Dates: start: 20010101, end: 20070101
  3. CLARITIN [Concomitant]
  4. PAXIL [Concomitant]

REACTIONS (18)
  - ATELECTASIS [None]
  - BLOOD CHOLESTEROL INCREASED [None]
  - DEHYDRATION [None]
  - DISEASE COMPLICATION [None]
  - HEPATOMEGALY [None]
  - HYPERCOAGULATION [None]
  - HYPONATRAEMIA [None]
  - INFECTION [None]
  - LEUKOCYTOSIS [None]
  - LOBAR PNEUMONIA [None]
  - LUNG INFILTRATION [None]
  - NAUSEA [None]
  - PHLEBITIS [None]
  - PLEURAL EFFUSION [None]
  - PULMONARY EMBOLISM [None]
  - PULMONARY INFARCTION [None]
  - SCAR [None]
  - VOMITING [None]
